FAERS Safety Report 7251743-6 (Version None)
Quarter: 2011Q1

REPORT INFORMATION
  Report Type: 
  Country: None (occurrence: None)
  Receive Date: 20110128
  Receipt Date: 20110118
  Transmission Date: 20110831
  Serious: Yes (Hospitalization)
  Sender: FDA-Public Use
  Company Number: US-ELI_LILLY_AND_COMPANY-US201012002981

PATIENT
  Sex: Female

DRUGS (6)
  1. ZYPREXA RELPREVV [Suspect]
     Indication: BIPOLAR DISORDER
     Dosage: 405 D/F, UNKNOWN
     Dates: start: 20100830
  2. LAMICTAL [Concomitant]
     Dosage: 100 MG, 2/D
  3. ATIVAN [Concomitant]
     Dosage: 1 MG, 3/D
  4. VENTOLIN [Concomitant]
     Dosage: 1 D/F, AS NEEDED
     Route: 055
  5. FLOVENT [Concomitant]
     Dosage: 1 D/F, AS NEEDED
     Route: 055
  6. PEPCID [Concomitant]
     Dosage: 20 MG, 2/D

REACTIONS (3)
  - OFF LABEL USE [None]
  - CATATONIA [None]
  - MENTAL DISORDER [None]
